FAERS Safety Report 4614060-6 (Version None)
Quarter: 2005Q1

REPORT INFORMATION
  Report Type: 
  Country: None (occurrence: None)
  Receive Date: 20050316
  Receipt Date: 20050225
  Transmission Date: 20050727
  Serious: Yes (Other)
  Sender: FDA-Public Use
  Company Number: GBS050216695

PATIENT
  Age: 10 Year
  Sex: Female
  Weight: 26 kg

DRUGS (1)
  1. STRATTERA [Suspect]
     Dosage: 25 MG DAY
     Dates: start: 20041220, end: 20050222

REACTIONS (3)
  - AGGRESSION [None]
  - AGITATION [None]
  - INSOMNIA [None]
